FAERS Safety Report 6524943-8 (Version None)
Quarter: 2009Q4

REPORT INFORMATION
  Report Type: 
  Country: None (occurrence: None)
  Receive Date: 20091230
  Receipt Date: 20091230
  Transmission Date: 20100525
  Serious: No
  Sender: FDA-Public Use
  Company Number: None

PATIENT
  Age: 76 Year
  Sex: Male
  Weight: 77.1115 kg

DRUGS (7)
  1. COLD REMEDY NASAL GEL [Suspect]
     Dosage: SPORADIC FOR 1 1/2 YEARS SPRING 2008 - RECENT
     Dates: start: 20080101
  2. COLD REMEDY RAPID MELTS WITH VITAMIN C [Suspect]
     Dosage: SPORADIC FOR 1 YEAR
     Dates: start: 20070101, end: 20080101
  3. COLD REMEDY RAPID MELTS [Suspect]
     Dosage: SPORADIC - 1 YEAR
     Dates: start: 20070101, end: 20080101
  4. MACROBID [Concomitant]
  5. VITAMIN C [Concomitant]
  6. MULTI-VITAMIN [Concomitant]
  7. ZINC [Concomitant]

REACTIONS (1)
  - HYPOSMIA [None]
